FAERS Safety Report 7526861-5 (Version None)
Quarter: 2011Q2

REPORT INFORMATION
  Report Type: 
  Country: None (occurrence: None)
  Receive Date: 20110606
  Receipt Date: 20110601
  Transmission Date: 20111010
  Serious: Yes (Death, Life-Threatening, Hospitalization, Other)
  Sender: FDA-Public Use
  Company Number: PHHO2011US08460

PATIENT
  Sex: Female
  Weight: 54 kg

DRUGS (11)
  1. TOBRADEX [Concomitant]
  2. AFINITOR [Suspect]
     Indication: COLORECTAL CANCER METASTATIC
     Dosage: 10 MG, QD
     Route: 048
     Dates: start: 20110304, end: 20110512
  3. NYSTATIN [Concomitant]
     Dosage: UNK
     Dates: start: 20110415
  4. ZOFRAN [Concomitant]
     Dosage: UNK
     Dates: start: 20090529
  5. MAGNESIUM GLUCONATE [Concomitant]
     Dosage: UNK
     Dates: start: 20110216
  6. LOMOTIL [Concomitant]
     Dosage: UNK
     Dates: start: 20110418
  7. PANTOPRAZOLE [Concomitant]
     Dosage: UNK
     Dates: start: 20110125
  8. CYANOCOBALAMIN [Concomitant]
     Dosage: UNK
     Dates: start: 20100820
  9. CELEXA [Concomitant]
     Dosage: UNK
     Dates: start: 20051210
  10. POTASSIUM CHLORIDE [Concomitant]
     Dosage: UNK
     Dates: start: 20090904
  11. TRAZODONE HCL [Concomitant]
     Dosage: UNK
     Dates: start: 20110416

REACTIONS (7)
  - NEOPLASM MALIGNANT [None]
  - ASPARTATE AMINOTRANSFERASE INCREASED [None]
  - HYPOMAGNESAEMIA [None]
  - THROMBOCYTOPENIA [None]
  - FAILURE TO THRIVE [None]
  - FATIGUE [None]
  - DEHYDRATION [None]
